FAERS Safety Report 4939214-0 (Version None)
Quarter: 2006Q1

REPORT INFORMATION
  Report Type: 
  Country: None (occurrence: None)
  Receive Date: 20060310
  Receipt Date: 20060202
  Transmission Date: 20060701
  Serious: Yes (Other)
  Sender: FDA-Public Use
  Company Number: PHBS2006JP01983

PATIENT
  Age: 34 Year
  Sex: Male

DRUGS (1)
  1. VOLTAREN [Suspect]
     Dosage: 100 MG/DAY
     Route: 054
     Dates: start: 20021101, end: 20021101

REACTIONS (1)
  - RHABDOMYOLYSIS [None]
